FAERS Safety Report 13434738 (Version 1)
Quarter: 2017Q2

REPORT INFORMATION
  Report Type: Spontaneous
  Country: US (occurrence: US)
  Receive Date: 20170412
  Receipt Date: 20170412
  Transmission Date: 20170830
  Serious: No
  Sender: FDA-Public Use
  Company Number: US-SA-2016SA055167

PATIENT
  Age: 87 Year
  Sex: Male

DRUGS (2)
  1. ALLEGRA ALLERGY [Suspect]
     Active Substance: FEXOFENADINE HYDROCHLORIDE
     Indication: HYPERSENSITIVITY
     Dosage: STOP DATE: AFTER 3 DAYS
     Route: 048
     Dates: start: 20160314
  2. ALLEGRA ALLERGY [Suspect]
     Active Substance: FEXOFENADINE HYDROCHLORIDE
     Indication: HYPERSENSITIVITY
     Dosage: STOP DATE: AFTER 3 DAYS
     Route: 048
     Dates: start: 20160314

REACTIONS (6)
  - Prostatic disorder [Unknown]
  - Pollakiuria [Unknown]
  - Somnolence [Recovered/Resolved]
  - Dysuria [Unknown]
  - Abdominal discomfort [Recovering/Resolving]
  - Frequent bowel movements [Recovering/Resolving]
